FAERS Safety Report 6909783-X (Version None)
Quarter: 2010Q3

REPORT INFORMATION
  Report Type: 
  Country: None (occurrence: None)
  Receive Date: 20100806
  Receipt Date: 20100728
  Transmission Date: 20110219
  Serious: Yes (Hospitalization)
  Sender: FDA-Public Use
  Company Number: 170144

PATIENT
  Age: 44 Year
  Sex: Female
  Weight: 74 kg

DRUGS (4)
  1. AVONEX [Suspect]
     Indication: MULTIPLE SCLEROSIS
     Route: 030
     Dates: start: 19970401, end: 19991201
  2. AVONEX [Suspect]
     Route: 030
     Dates: start: 19991201
  3. SYNTHROID [Concomitant]
     Indication: HYPOTHYROIDISM
  4. COPAXONE [Concomitant]
     Indication: MULTIPLE SCLEROSIS
     Dates: start: 19991201, end: 19991201

REACTIONS (11)
  - ALLERGY TO METALS [None]
  - HIP ARTHROPLASTY [None]
  - INCORRECT ROUTE OF DRUG ADMINISTRATION [None]
  - INJECTION SITE ERYTHEMA [None]
  - INJECTION SITE PAIN [None]
  - MIGRAINE [None]
  - MUSCLE SPASTICITY [None]
  - MYALGIA [None]
  - OSTEOARTHRITIS [None]
  - PULMONARY EMBOLISM [None]
  - URTICARIA [None]
